FAERS Safety Report 10072433 (Version 2)
Quarter: 2014Q2

REPORT INFORMATION
  Report Type: Spontaneous
  Country: IT (occurrence: IT)
  Receive Date: 20140411
  Receipt Date: 20140411
  Transmission Date: 20141212
  Serious: Yes (Life-Threatening)
  Sender: FDA-Public Use
  Company Number: IT-NOVOPROD-400978

PATIENT
  Sex: Female

DRUGS (3)
  1. NOVORAPID FLEXPEN [Suspect]
     Indication: DIABETES MELLITUS
     Dosage: 4 U (BEFORE LUNCH)
     Route: 058
     Dates: start: 20140205
  2. NOVORAPID FLEXPEN [Suspect]
     Dosage: 3 U
     Route: 058
     Dates: start: 20140206
  3. LEVEMIR FLEXPEN [Concomitant]
     Indication: DIABETES MELLITUS
     Dosage: 12 U, QD
     Route: 058

REACTIONS (5)
  - Tremor [Recovered/Resolved]
  - Hyperhidrosis [Recovered/Resolved]
  - Pallor [Recovered/Resolved]
  - Lip discolouration [Recovered/Resolved]
  - Blood glucose increased [Recovered/Resolved]
